FAERS Safety Report 18654009 (Version 1)
Quarter: 2020Q4

REPORT INFORMATION
  Report Type: Spontaneous
  Country: US (occurrence: US)
  Receive Date: 20201223
  Receipt Date: 20201223
  Transmission Date: 20210114
  Serious: Yes (Hospitalization)
  Sender: FDA-Public Use
  Company Number: None

PATIENT
  Age: 79 Year
  Sex: Male
  Weight: 101 kg

DRUGS (2)
  1. SODIUM CHLORIDE 0.9% [Concomitant]
     Active Substance: SODIUM CHLORIDE
     Dates: start: 20201222, end: 20201222
  2. BAMLANIVIMAB TREATMENT UNDER EMERGENCY USE AUTHORIZATION (EUA)^ [Suspect]
     Active Substance: BAMLANIVIMAB
     Indication: COVID-19
     Dosage: ?          OTHER FREQUENCY:ONCE;?
     Route: 042
     Dates: start: 20201222, end: 20201222

REACTIONS (12)
  - Pyrexia [None]
  - Sepsis [None]
  - Pneumonia [None]
  - Atrial fibrillation [None]
  - Infusion related reaction [None]
  - Tremor [None]
  - Dyspnoea [None]
  - Oxygen saturation decreased [None]
  - Pallor [None]
  - Hypoxia [None]
  - Peripheral coldness [None]
  - Chills [None]

NARRATIVE: CASE EVENT DATE: 20201222
